FAERS Safety Report 10671075 (Version 1)
Quarter: 2014Q4

REPORT INFORMATION
  Report Type: Spontaneous
  Country: ES (occurrence: None)
  Receive Date: 20141219
  Receipt Date: 20141219
  Transmission Date: 20150529
  Serious: Yes (Other)
  Sender: FDA-Public Use
  Company Number: TPU2014-00425

PATIENT
  Sex: Female

DRUGS (3)
  1. VERSATIS [Suspect]
     Active Substance: LIDOCAINE
     Indication: COMPLEX REGIONAL PAIN SYNDROME
     Route: 061
  2. ZALDIAR (ULTRACET) [Concomitant]
  3. GABAPENTIN. [Concomitant]
     Active Substance: GABAPENTIN

REACTIONS (3)
  - Asphyxia [None]
  - Tachycardia [None]
  - Tinnitus [None]
